FAERS Safety Report 10693926 (Version 2)
Quarter: 2015Q1

REPORT INFORMATION
  Report Type: Spontaneous
  Country: US (occurrence: US)
  Receive Date: 20150106
  Receipt Date: 20150113
  Transmission Date: 20150721
  Serious: No
  Sender: FDA-Public Use
  Company Number: US-GLAXOSMITHKLINE-US2014GSK045447

PATIENT
  Sex: Female

DRUGS (2)
  1. BREO ELLIPTA [Suspect]
     Active Substance: FLUTICASONE FUROATE\VILANTEROL TRIFENATATE
     Indication: COUGH
     Dosage: 1 PUFF(S), QD
     Route: 055
     Dates: start: 20141024
  2. GLAUCOMA EYE DROPS (GLAUCOMA MEDICATION NOS) [Concomitant]

REACTIONS (3)
  - Laryngitis [Unknown]
  - Drug dose omission [Unknown]
  - Aphonia [Unknown]
